FAERS Safety Report 18429759 (Version 3)
Quarter: 2020Q4

REPORT INFORMATION
  Report Type: Report from Study
  Country: IT (occurrence: IT)
  Receive Date: 20201027
  Receipt Date: 20201116
  Transmission Date: 20210114
  Serious: Yes (Hospitalization, Other)
  Sender: FDA-Public Use
  Company Number: IT-AMGEN-ITACT2020172206

PATIENT
  Age: 75 Year
  Sex: Male
  Weight: 88 kg

DRUGS (7)
  1. METFORMINA [METFORMIN] [Concomitant]
     Active Substance: METFORMIN HYDROCHLORIDE
     Indication: DIABETES MELLITUS
     Dosage: 1000 MILLIGRAM, BID
     Route: 048
     Dates: start: 2001
  2. 5 FU [Suspect]
     Active Substance: FLUOROURACIL
     Dosage: 4800 MILLIGRAM
     Route: 042
     Dates: start: 20201005
  3. DOXAZOSINA [DOXAZOSIN] [Concomitant]
     Indication: HYPERTENSION
     Dosage: 4 MILLIGRAM, QD
     Route: 048
     Dates: start: 2010
  4. 5 FU [Suspect]
     Active Substance: FLUOROURACIL
     Indication: COLORECTAL CANCER METASTATIC
     Dosage: 600 MILLIGRAM
     Route: 042
     Dates: start: 20201005
  5. PANITUMUMAB [Suspect]
     Active Substance: PANITUMUMAB
     Indication: COLORECTAL CANCER METASTATIC
     Dosage: 530 MILLIGRAM
     Route: 042
     Dates: start: 20201005
  6. IRINOTECAN [Suspect]
     Active Substance: IRINOTECAN
     Indication: COLORECTAL CANCER METASTATIC
     Dosage: 360 MILLIGRAM
     Route: 042
     Dates: start: 20201005
  7. PRAVASTATINA [PRAVASTATIN SODIUM] [Concomitant]
     Indication: HYPERTENSION
     Dosage: 40 MILLIGRAM, QD
     Route: 048
     Dates: start: 2010

REACTIONS (1)
  - Febrile neutropenia [Recovered/Resolved]

NARRATIVE: CASE EVENT DATE: 20201018
